FAERS Safety Report 14552604 (Version 2)
Quarter: 2018Q1

REPORT INFORMATION
  Report Type: Report from Study
  Country: US (occurrence: US)
  Receive Date: 20180220
  Receipt Date: 20180223
  Transmission Date: 20180509
  Serious: Yes (Other)
  Sender: FDA-Public Use
  Company Number: US-JAZZ-2017-US-017050

PATIENT
  Sex: Male

DRUGS (25)
  1. XYREM [Suspect]
     Active Substance: SODIUM OXYBATE
     Dosage: 4.5 G, BID
     Route: 048
     Dates: start: 201004
  2. HYTRIN [Concomitant]
     Active Substance: TERAZOSIN HYDROCHLORIDE
  3. PYGEUM [Concomitant]
     Active Substance: PYGEUM
  4. DICLOFENAC [Concomitant]
     Active Substance: DICLOFENAC
  5. TERAZOSIN [Concomitant]
     Active Substance: TERAZOSIN\TERAZOSIN HYDROCHLORIDE
  6. VIAGRA [Concomitant]
     Active Substance: SILDENAFIL CITRATE
  7. CLOMIPRAMINE [Concomitant]
     Active Substance: CLOMIPRAMINE
  8. DEXTROPROPOXYPHENE HCL W/PARACETAMOL [Concomitant]
     Active Substance: ACETAMINOPHEN\PROPOXYPHENE HYDROCHLORIDE
  9. LISINOPRIL. [Concomitant]
     Active Substance: LISINOPRIL
  10. NORVASC [Concomitant]
     Active Substance: AMLODIPINE BESYLATE
  11. XYREM [Suspect]
     Active Substance: SODIUM OXYBATE
     Indication: NARCOLEPSY
     Dosage: 2.25 G, BID
     Route: 048
     Dates: start: 201003, end: 201003
  12. XYREM [Suspect]
     Active Substance: SODIUM OXYBATE
     Dosage: DOSE ADJUSTMENTS
     Route: 048
     Dates: start: 201003, end: 201004
  13. CEFALEXIN [Concomitant]
     Active Substance: CEPHALEXIN
  14. ALPRAZOLAM. [Concomitant]
     Active Substance: ALPRAZOLAM
  15. ACETYLSALICYLIC ACID [Concomitant]
     Active Substance: ASPIRIN
  16. HYDROCODONE BITARTRATE AND ACETAMINOPHEN [Concomitant]
     Active Substance: ACETAMINOPHEN\HYDROCODONE BITARTRATE
  17. SIMVASTATIN. [Concomitant]
     Active Substance: SIMVASTATIN
  18. TESTOSTERONE. [Concomitant]
     Active Substance: TESTOSTERONE
  19. TRAMADOL HCL [Concomitant]
     Active Substance: TRAMADOL HYDROCHLORIDE
  20. COREG [Concomitant]
     Active Substance: CARVEDILOL
  21. DEPLIN [Concomitant]
     Active Substance: LEVOMEFOLATE CALCIUM
  22. CYCLOBENZAPRINE HYDROCHLORIDE. [Concomitant]
     Active Substance: CYCLOBENZAPRINE HYDROCHLORIDE
  23. METFORMIN HCL [Concomitant]
     Active Substance: METFORMIN HYDROCHLORIDE
  24. DYMISTA [Concomitant]
     Active Substance: AZELASTINE HYDROCHLORIDE\FLUTICASONE PROPIONATE
  25. RAPAFLO [Concomitant]
     Active Substance: SILODOSIN

REACTIONS (2)
  - Condition aggravated [Not Recovered/Not Resolved]
  - Spinal column stenosis [Not Recovered/Not Resolved]
